FAERS Safety Report 7000897-5 (Version None)
Quarter: 2010Q3

REPORT INFORMATION
  Report Type: 
  Country: None (occurrence: None)
  Receive Date: 20100920
  Receipt Date: 20100909
  Transmission Date: 20110219
  Serious: Yes (Hospitalization)
  Sender: FDA-Public Use
  Company Number: PHHY2010DE60688

PATIENT
  Sex: Female

DRUGS (2)
  1. TEGRETOL [Suspect]
     Indication: EPILEPSY
     Dosage: 1200 MG, QD
     Route: 048
  2. JARSIN [Interacting]
     Dosage: UNK
     Dates: end: 20100101

REACTIONS (3)
  - CEREBRAL HAEMORRHAGE [None]
  - CONVULSION [None]
  - DRUG INTERACTION [None]
